FAERS Safety Report 7449782-5 (Version None)
Quarter: 2011Q2

REPORT INFORMATION
  Report Type: 
  Country: None (occurrence: None)
  Receive Date: 20110421
  Receipt Date: 20110406
  Transmission Date: 20111010
  Serious: Yes (Other)
  Sender: FDA-Public Use
  Company Number: AUR-APL-2011-01084

PATIENT
  Age: 73 Year
  Sex: Male

DRUGS (8)
  1. CILOSTAZOL [Concomitant]
  2. METOPROLOL SUCCINATE [Concomitant]
  3. LISINOPRIL [Suspect]
     Indication: BLOOD PRESSURE
     Dosage: QOD
     Dates: start: 20110303
  4. WARFARIN SODIUM [Suspect]
     Indication: THROMBOSIS
     Dosage: 5MG-MONDAY/TUESDAY
     Dates: start: 20110105
  5. FUROSEMIDE [Suspect]
     Indication: BLOOD PRESSURE
     Dates: end: 20110303
  6. LISINOPRIL [Suspect]
     Indication: BLOOD PRESSURE
     Dosage: DAILY
     Dates: start: 20100101, end: 20110303
  7. VERAPAMIL HCL [Suspect]
     Indication: BLOOD PRESSURE
     Dates: end: 20110303
  8. WARFARIN SODIUM [Suspect]
     Indication: THROMBOSIS
     Dosage: 7.5MG

REACTIONS (4)
  - HYPOTENSION [None]
  - DYSPNOEA [None]
  - DIZZINESS POSTURAL [None]
  - WEIGHT DECREASED [None]
